FAERS Safety Report 8576752-6 (Version None)
Quarter: 2012Q3

REPORT INFORMATION
  Report Type: 
  Country: None (occurrence: None)
  Receive Date: 20120807
  Receipt Date: 20120725
  Transmission Date: 20120928
  Serious: No
  Sender: FDA-Public Use
  Company Number: US-ASTRAZENECA-2012SE49385

PATIENT
  Age: 81 Year
  Sex: Female
  Weight: 59 kg

DRUGS (14)
  1. BIOTIN [Concomitant]
  2. MSM [Concomitant]
  3. LISINOPRIL [Suspect]
     Route: 048
  4. CRESTOR [Suspect]
     Route: 048
  5. CALCIUM CITRATE [Concomitant]
  6. CRANBERRY [Concomitant]
     Indication: URINARY TRACT INFECTION
  7. TYLENOL [Concomitant]
     Indication: PAIN
  8. VITAMIN D [Concomitant]
  9. DICYCLOMINE [Concomitant]
  10. SYNTHROID [Concomitant]
  11. CALCIUM [Concomitant]
  12. ACIPHEX [Concomitant]
  13. GASEX [Concomitant]
  14. MULTI-VITAMINS [Concomitant]

REACTIONS (7)
  - PAIN IN EXTREMITY [None]
  - HEADACHE [None]
  - BODY HEIGHT DECREASED [None]
  - LACTOSE INTOLERANCE [None]
  - WEIGHT DECREASED [None]
  - ARTHRALGIA [None]
  - MUSCULOSKELETAL PAIN [None]
